FAERS Safety Report 15463177 (Version 6)
Quarter: 2018Q4

REPORT INFORMATION
  Report Type: Spontaneous
  Country: RU (occurrence: RU)
  Receive Date: 20181004
  Receipt Date: 20181109
  Transmission Date: 20190204
  Serious: Yes (Hospitalization, Other)
  Sender: FDA-Public Use
  Company Number: RU-IPSEN BIOPHARMACEUTICALS, INC.-2018-14691

PATIENT
  Age: 41 Year
  Sex: Female
  Weight: 65 kg

DRUGS (7)
  1. DEXAMETHASONE. [Concomitant]
     Active Substance: DEXAMETHASONE
  2. SUPRASTIN [Concomitant]
     Active Substance: CHLOROPYRAMINE HYDROCHLORIDE
  3. DYSPORT [Suspect]
     Active Substance: ABOBOTULINUMTOXINA
     Indication: INTENTIONAL PRODUCT USE ISSUE
     Dosage: 1500 UNITS (500 UNITS PER 2ML 0.9% NACL SOLUTION ONTO THE NECK TO THE RIGHT, ON THE THORACIC AND LUM
     Route: 030
     Dates: start: 20180911, end: 20180911
  4. RELATOX [Concomitant]
     Dates: start: 201804
  5. DYSPORT [Suspect]
     Active Substance: ABOBOTULINUMTOXINA
     Indication: TORTICOLLIS
  6. RELATOX [Concomitant]
     Dates: start: 201807
  7. DYSPORT [Suspect]
     Active Substance: ABOBOTULINUMTOXINA
     Indication: OFF LABEL USE

REACTIONS (13)
  - Posture abnormal [Unknown]
  - Dysphagia [Not Recovered/Not Resolved]
  - Eyelid ptosis [Unknown]
  - Inflammation [Unknown]
  - Intentional product use issue [Unknown]
  - Dyspnoea [Unknown]
  - Swelling [Unknown]
  - Throat irritation [Unknown]
  - Muscular weakness [Unknown]
  - Erythema [Unknown]
  - Post procedural oedema [Unknown]
  - Gait inability [Recovered/Resolved]
  - Laryngeal oedema [Unknown]

NARRATIVE: CASE EVENT DATE: 20180912
